FAERS Safety Report 10508854 (Version 1)
Quarter: 2014Q4

REPORT INFORMATION
  Report Type: Spontaneous
  Country: US (occurrence: None)
  Receive Date: 20141008
  Receipt Date: 20141008
  Transmission Date: 20150528
  Serious: No
  Sender: FDA-Public Use
  Company Number: None

PATIENT
  Age: 59 Year
  Sex: Female

DRUGS (1)
  1. SYNTHROID [Suspect]
     Active Substance: LEVOTHYROXINE SODIUM
     Indication: HYPOTHYROIDISM
     Route: 048
     Dates: start: 20140827, end: 20141002

REACTIONS (5)
  - Hyperhidrosis [None]
  - Tremor [None]
  - Nausea [None]
  - Abdominal distension [None]
  - Blood pressure fluctuation [None]

NARRATIVE: CASE EVENT DATE: 20141002
